FAERS Safety Report 7270557-4 (Version None)
Quarter: 2011Q1

REPORT INFORMATION
  Report Type: 
  Country: None (occurrence: None)
  Receive Date: 20110124
  Receipt Date: 20110124
  Transmission Date: 20110831
  Serious: Yes (Death, Other)
  Sender: FDA-Public Use
  Company Number: None

PATIENT
  Age: 66 Year
  Sex: Female

DRUGS (1)
  1. PRECISION EXTRA STRIPS ABOTT LAB [Suspect]
     Indication: DIABETES MELLITUS
     Dosage: USE 5 TO 7 TIMES DAILY
     Dates: start: 20100920, end: 20110109

REACTIONS (2)
  - BLOOD GLUCOSE DECREASED [None]
  - BLOOD GLUCOSE INCREASED [None]
